FAERS Safety Report 15817743 (Version 1)
Quarter: 2019Q1

REPORT INFORMATION
  Report Type: Spontaneous
  Country: NL (occurrence: NL)
  Receive Date: 20190113
  Receipt Date: 20190113
  Transmission Date: 20190417
  Serious: Yes (Hospitalization)
  Sender: FDA-Public Use
  Company Number: NL-TEVA-2019-NL-998256

PATIENT
  Age: 58 Year
  Sex: Female
  Weight: 81 kg

DRUGS (14)
  1. LITHIUMCARBONAAT TABLET, 400 MG (MILLIGRAM) [Interacting]
     Active Substance: LITHIUM CARBONATE
     Indication: BIPOLAR DISORDER
     Dosage: 1000 MILLIGRAM DAILY;
     Dates: start: 20181021, end: 20181217
  2. OMEPRAZOL TABLET 20MG [Concomitant]
     Dosage: 2DD
  3. COLECALCIFEROL TABLET   800IE [Concomitant]
     Dosage: 1DD
  4. ACLIDINIUM INHALATIEPOEDER 340MCG [Concomitant]
     Dosage: 1 DOSAGE FORMS DAILY; 1DD
  5. FENPROCOUMON TABLET 3MG [Concomitant]
     Active Substance: PHENPROCOUMON
     Dosage: ACCORDING TO APPOINTMENT
  6. ATORVASTATINE TABLET 40MG [Concomitant]
     Dosage: 1 DOSAGE FORMS DAILY; 1DD
  7. FORMOTEROL INHALATIEPOEDER 12MCG [Concomitant]
     Dosage: 1 DOSAGE FORMS DAILY; 1DD
  8. CANDESARTAN TABLET, 8 MG (MILLIGRAM) [Interacting]
     Active Substance: CANDESARTAN
     Indication: HYPERTENSION
     Dosage: 1 DOSAGE FORMS DAILY; 1DD
     Dates: start: 201809, end: 20181218
  9. FUROSEMIDE TABLET 40MG [Concomitant]
     Active Substance: FUROSEMIDE
     Dosage: 2DD
  10. SPIRONOLACTON TABLET, 50 MG (MILLIGRAM) [Suspect]
     Active Substance: SPIRONOLACTONE
     Indication: HYPOKALAEMIA
     Dosage: 3DD
     Dates: start: 201809, end: 20181217
  11. FERROFUMARAAT TABLET 200MG [Concomitant]
     Active Substance: FERROUS FUMARATE
     Dosage: 1 DOSAGE FORMS DAILY; 1DD
  12. LOSARTAN TABLET  50MG [Concomitant]
     Dosage: 1 DOSAGE FORMS DAILY; 1DD
  13. SEREVENT INHALATIEGAS 25MCG [Concomitant]
     Dosage: 2DD2
  14. METOPROLOL TABLET   25MG [Concomitant]
     Dosage: 1 DOSAGE FORMS DAILY; 1DD

REACTIONS (4)
  - Acute kidney injury [Recovering/Resolving]
  - Toxicity to various agents [Recovering/Resolving]
  - Hyperkalaemia [Recovered/Resolved]
  - Drug interaction [Unknown]

NARRATIVE: CASE EVENT DATE: 20181121
